FAERS Safety Report 10982173 (Version 2)
Quarter: 2015Q2

REPORT INFORMATION
  Report Type: Spontaneous
  Country: US (occurrence: US)
  Receive Date: 20150403
  Receipt Date: 20150525
  Transmission Date: 20150821
  Serious: No
  Sender: FDA-Public Use
  Company Number: US-JNJFOC-20140216512

PATIENT
  Age: 35 Year
  Sex: Male
  Weight: 120.2 kg

DRUGS (4)
  1. IMODIUM MULTI-SYMPTOM RELIEF [Suspect]
     Active Substance: DIMETHICONE\LOPERAMIDE HYDROCHLORIDE
     Indication: DIARRHOEA
     Dosage: TOOK 2 CAPLETS AT A TIME WITH A TOTAL OF 12 CAPLETS
     Route: 048
     Dates: start: 20140222, end: 20140224
  2. METFORMIN [Concomitant]
     Active Substance: METFORMIN HYDROCHLORIDE
     Indication: DIABETES MELLITUS
     Dosage: 4 YEARS AGO
     Route: 065
  3. IMODIUM MULTI-SYMPTOM RELIEF [Suspect]
     Active Substance: DIMETHICONE\LOPERAMIDE HYDROCHLORIDE
     Indication: FLATULENCE
     Dosage: TOOK 2 CAPLETS AT A TIME WITH A TOTAL OF 12 CAPLETS
     Route: 048
     Dates: start: 20140222, end: 20140224
  4. IMODIUM MULTI-SYMPTOM RELIEF [Suspect]
     Active Substance: DIMETHICONE\LOPERAMIDE HYDROCHLORIDE
     Indication: ABDOMINAL DISTENSION
     Dosage: TOOK 2 CAPLETS AT A TIME WITH A TOTAL OF 12 CAPLETS
     Route: 048
     Dates: start: 20140222, end: 20140224

REACTIONS (1)
  - Drug ineffective [Unknown]
